FAERS Safety Report 7811429-3 (Version None)
Quarter: 2011Q4

REPORT INFORMATION
  Report Type: 
  Country: None (occurrence: None)
  Receive Date: 20111013
  Receipt Date: 20111011
  Transmission Date: 20120403
  Serious: Yes (Other)
  Sender: FDA-Public Use
  Company Number: US-PFIZER INC-2009256311

PATIENT
  Sex: Female
  Weight: 95.24 kg

DRUGS (4)
  1. SIMVASTATIN [Concomitant]
     Indication: BLOOD CHOLESTEROL INCREASED
     Dosage: 40 MG, DAILY
  2. CHANTIX [Suspect]
     Indication: SMOKING CESSATION THERAPY
     Dosage: 0.5 MG, 1X/DAY
     Dates: start: 20090101, end: 20090601
  3. ETODOLAC [Concomitant]
     Dosage: UNK
  4. NEURONTIN [Concomitant]
     Dosage: UNK

REACTIONS (1)
  - HEPATIC ENZYME INCREASED [None]
